FAERS Safety Report 16576805 (Version 1)
Quarter: 2019Q3

REPORT INFORMATION
  Report Type: Spontaneous
  Country: FR (occurrence: FR)
  Receive Date: 20190716
  Receipt Date: 20190716
  Transmission Date: 20191004
  Serious: Yes (Disabling)
  Sender: FDA-Public Use
  Company Number: FR-GLAXOSMITHKLINE-FR2019126453

PATIENT
  Age: 7 Year
  Sex: Female

DRUGS (4)
  1. SERETIDE [Suspect]
     Active Substance: FLUTICASONE PROPIONATE\SALMETEROL XINAFOATE
     Indication: CYSTIC FIBROSIS
     Dosage: 2 DF, QD
     Route: 055
  2. VITAMIN K1 [Suspect]
     Active Substance: PHYTONADIONE
     Indication: CYSTIC FIBROSIS
     Dosage: 10 MG, UNK
     Route: 048
  3. FORLAX (MACROGOL 4000) [Suspect]
     Active Substance: POLYETHYLENE GLYCOL 4000
     Indication: CONSTIPATION
     Dosage: 1 DF, QD
     Route: 048
  4. VENTOLINE [Suspect]
     Active Substance: ALBUTEROL
     Indication: CYSTIC FIBROSIS
     Dosage: AS NECESSARY
     Route: 055

REACTIONS (1)
  - Osteochondritis [Recovered/Resolved with Sequelae]

NARRATIVE: CASE EVENT DATE: 201210
